FAERS Safety Report 25253584 (Version 2)
Quarter: 2025Q2

REPORT INFORMATION
  Report Type: Spontaneous
  Country: US (occurrence: US)
  Receive Date: 20250430
  Receipt Date: 20250502
  Transmission Date: 20250717
  Serious: No
  Sender: BRISTOL MYERS SQUIBB
  Company Number: US-BRISTOL-MYERS SQUIBB COMPANY-2025-063085

PATIENT
  Age: 67 Year
  Sex: Male
  Weight: 61.6 kg

DRUGS (1)
  1. NULOJIX [Suspect]
     Active Substance: BELATACEPT
     Indication: Renal transplant
     Route: 042

REACTIONS (2)
  - Laboratory test abnormal [Unknown]
  - Product dose omission issue [Unknown]

NARRATIVE: CASE EVENT DATE: 20250418
